FAERS Safety Report 25441250 (Version 1)
Quarter: 2025Q2

REPORT INFORMATION
  Report Type: Spontaneous
  Country: US (occurrence: US)
  Receive Date: 20250616
  Receipt Date: 20250616
  Transmission Date: 20250717
  Serious: Yes (Other)
  Sender: AMGEN
  Company Number: US-AMGEN-USASP2025115401

PATIENT
  Age: 44 Year
  Sex: Female

DRUGS (5)
  1. REPATHA [Suspect]
     Active Substance: EVOLOCUMAB
     Indication: Diabetes mellitus
     Dosage: UNK UNK, Q2WK
     Route: 065
  2. REPATHA [Suspect]
     Active Substance: EVOLOCUMAB
     Indication: Arteriosclerosis
  3. REPATHA [Suspect]
     Active Substance: EVOLOCUMAB
     Indication: Low density lipoprotein increased
  4. CRESTOR [Concomitant]
     Active Substance: ROSUVASTATIN CALCIUM
  5. EZETIMIBE [Concomitant]
     Active Substance: EZETIMIBE

REACTIONS (4)
  - Blood glucose increased [Recovering/Resolving]
  - Headache [Unknown]
  - Ear pain [Unknown]
  - Pain in jaw [Unknown]
